FAERS Safety Report 17533496 (Version 2)
Quarter: 2020Q2

REPORT INFORMATION
  Report Type: Spontaneous
  Country: US (occurrence: US)
  Receive Date: 20200312
  Receipt Date: 20200629
  Transmission Date: 20200713
  Serious: No
  Sender: FDA-Public Use
  Company Number: US-VERTEX PHARMACEUTICALS-2020-004756

PATIENT
  Age: 39 Year
  Sex: Male

DRUGS (4)
  1. TRIKAFTA [Suspect]
     Active Substance: ELEXACAFTOR\IVACAFTOR\TEZACAFTOR
     Indication: CYSTIC FIBROSIS
     Dosage: 2 TABLETS (100MG ELEXACAFTOR/ 50MG TEZACAFTOR/ 75MG IVACAFTOR) AM; 1 TABLET (150MG IVACAFTOR) PM
     Route: 048
     Dates: start: 20200220
  2. PREDNISOLONE. [Concomitant]
     Active Substance: PREDNISOLONE
  3. TACROLIMUS. [Concomitant]
     Active Substance: TACROLIMUS
  4. LANTUS [Concomitant]
     Active Substance: INSULIN GLARGINE

REACTIONS (5)
  - Nausea [Recovered/Resolved]
  - Headache [Recovered/Resolved]
  - Blood glucose decreased [Recovering/Resolving]
  - Vomiting [Recovered/Resolved]
  - Diarrhoea [Recovered/Resolved]

NARRATIVE: CASE EVENT DATE: 2020
